FAERS Safety Report 8180875-3 (Version None)
Quarter: 2012Q1

REPORT INFORMATION
  Report Type: 
  Country: None (occurrence: None)
  Receive Date: 20120302
  Receipt Date: 20120229
  Transmission Date: 20120608
  Serious: Yes (Death, Life-Threatening)
  Sender: FDA-Public Use
  Company Number: DE-B.I. PHARMACEUTICALS,INC./RIDGEFIELD-2011-DE-06890DE

PATIENT
  Age: 76 Year
  Sex: Female
  Weight: 75 kg

DRUGS (10)
  1. AMIODARONE HCL [Suspect]
     Dosage: 200 MG
     Route: 048
  2. BISOPROLOL FUMARATE [Concomitant]
     Dosage: 5 MG
     Route: 048
  3. CITALOPRAM HYDROBROMIDE [Concomitant]
     Dosage: 20 MG
     Route: 048
  4. ACETYLSALICYLIC ACID SRT [Concomitant]
     Dosage: 100 MG
     Route: 048
  5. PANTOPRAZOLE [Concomitant]
     Dosage: 40 MG
     Route: 048
  6. ALLOPURINOL [Concomitant]
     Dosage: 100 MG
     Route: 048
  7. CANDESARTAN CILEXETIL [Concomitant]
     Dosage: 8 MG
     Route: 048
  8. LEVOTHYROXINE SODIUM [Concomitant]
     Dosage: 75 MCG
     Route: 048
  9. TRIAMTERENE AND HYDROCHLOROTHIAZIDE [Concomitant]
     Dosage: 1 ANZ
     Route: 048
  10. PRADAXA [Suspect]
     Dosage: 2 ANZ
     Route: 048

REACTIONS (3)
  - MYOCARDIAL INFARCTION [None]
  - SYNCOPE [None]
  - SUDDEN DEATH [None]
